FAERS Safety Report 18641141 (Version 3)
Quarter: 2021Q1

REPORT INFORMATION
  Report Type: Spontaneous
  Country: AT (occurrence: AT)
  Receive Date: 20201221
  Receipt Date: 20210113
  Transmission Date: 20210419
  Serious: Yes (Death)
  Sender: FDA-Public Use
  Company Number: AT-TEVA-2020-AT-1859498

PATIENT
  Age: 57 Year
  Sex: Male

DRUGS (4)
  1. ABILIFY [Suspect]
     Active Substance: ARIPIPRAZOLE
     Dosage: 5 MG
     Dates: start: 20191111, end: 20191114
  2. VENLAFAXIN [Suspect]
     Active Substance: VENLAFAXINE HYDROCHLORIDE
     Indication: MAJOR DEPRESSION
     Dosage: FOR MONTHS, 300 MG
     Dates: start: 2019, end: 20191114
  3. KETAMIN [Suspect]
     Active Substance: KETAMINE
     Dosage: 75 MG
     Dates: start: 20191112, end: 20191114
  4. KETAMIN [Suspect]
     Active Substance: KETAMINE
     Dosage: 50 MG
     Dates: start: 20191108, end: 20191110

REACTIONS (1)
  - Completed suicide [Fatal]

NARRATIVE: CASE EVENT DATE: 20191114
